FAERS Safety Report 16371843 (Version 1)
Quarter: 2019Q2

REPORT INFORMATION
  Report Type: Spontaneous
  Country: MX (occurrence: MX)
  Receive Date: 20190530
  Receipt Date: 20190530
  Transmission Date: 20190711
  Serious: Yes (Hospitalization, Other)
  Sender: FDA-Public Use
  Company Number: MX-TEVA-2019-MX-1055827

PATIENT
  Sex: Female
  Weight: 47.5 kg

DRUGS (11)
  1. PHENOBARBITAL. [Interacting]
     Active Substance: PHENOBARBITAL
     Indication: PARTIAL SEIZURES
     Route: 065
  2. AZATHIOPRINE. [Concomitant]
     Active Substance: AZATHIOPRINE
     Route: 065
  3. LEVETIRACETAM. [Suspect]
     Active Substance: LEVETIRACETAM
     Indication: PARTIAL SEIZURES
     Route: 065
  4. MAGNESIUM VALPROATE [Interacting]
     Active Substance: VALPROATE MAGNESIUM
     Indication: SUICIDE ATTEMPT
  5. HYDROXYCHLOROQUINE [Suspect]
     Active Substance: HYDROXYCHLOROQUINE
     Route: 065
  6. PREDNISONE. [Suspect]
     Active Substance: PREDNISONE
     Route: 065
  7. CALCIUM [Concomitant]
     Active Substance: CALCIUM
     Route: 065
  8. WARFARIN [Interacting]
     Active Substance: WARFARIN
     Indication: DEEP VEIN THROMBOSIS
     Route: 065
  9. VITAMIN D [Concomitant]
     Active Substance: VITAMIN D NOS
     Route: 065
  10. MAGNESIUM VALPROATE [Interacting]
     Active Substance: VALPROATE MAGNESIUM
     Indication: PARTIAL SEIZURES
     Route: 048
  11. TOPIRAMATE. [Suspect]
     Active Substance: TOPIRAMATE
     Route: 065

REACTIONS (9)
  - Altered state of consciousness [Recovering/Resolving]
  - Major depression [Recovering/Resolving]
  - Suicide attempt [Recovered/Resolved]
  - Irritability [Recovering/Resolving]
  - Nausea [Unknown]
  - Dizziness [Unknown]
  - Impulsive behaviour [Recovering/Resolving]
  - Asthenia [Unknown]
  - Drug interaction [Recovering/Resolving]
